FAERS Safety Report 9299772 (Version 3)
Quarter: 2013Q4

REPORT INFORMATION
  Report Type: Spontaneous
  Country: US (occurrence: US)
  Receive Date: 20130521
  Receipt Date: 20131115
  Transmission Date: 20140711
  Serious: No
  Sender: FDA-Public Use
  Company Number: US-BIOGENIDEC-2013BI044410

PATIENT
  Age: 45 Year
  Sex: Female

DRUGS (9)
  1. AVONEX [Suspect]
     Indication: MULTIPLE SCLEROSIS
     Route: 030
     Dates: start: 20070221, end: 20070601
  2. AVONEX [Suspect]
     Indication: MULTIPLE SCLEROSIS
     Route: 030
     Dates: start: 20130527, end: 20130627
  3. AVONEX [Suspect]
     Indication: MULTIPLE SCLEROSIS
     Route: 030
     Dates: start: 20130628
  4. FENTANYL [Concomitant]
     Indication: BACK PAIN
  5. NEURONTIN [Concomitant]
     Indication: BACK PAIN
  6. DIAZEPAM [Concomitant]
     Indication: BACK PAIN
  7. TYLENOL [Concomitant]
  8. HYDROCODONE [Concomitant]
  9. OXYCODONE [Concomitant]

REACTIONS (9)
  - Muscle contractions involuntary [Recovered/Resolved]
  - Tremor [Not Recovered/Not Resolved]
  - Back pain [Not Recovered/Not Resolved]
  - JC virus test positive [Not Recovered/Not Resolved]
  - Influenza like illness [Recovered/Resolved]
  - Chills [Recovered/Resolved]
  - Pyrexia [Recovered/Resolved]
  - Myalgia [Not Recovered/Not Resolved]
  - Muscular weakness [Not Recovered/Not Resolved]
